FAERS Safety Report 9421803 (Version 11)
Quarter: 2014Q3

REPORT INFORMATION
  Report Type: Report from Study
  Country: DE (occurrence: DE)
  Receive Date: 20130726
  Receipt Date: 20140723
  Transmission Date: 20150326
  Serious: Yes (Hospitalization)
  Sender: FDA-Public Use
  Company Number: DE-BRISTOL-MYERS SQUIBB COMPANY-19124262

PATIENT
  Age: 56 Year
  Sex: Female

DRUGS (14)
  1. ZOFRAN [Concomitant]
     Active Substance: ONDANSETRON HYDROCHLORIDE
     Indication: VOMITING
  2. LAXOBERAL [Concomitant]
     Active Substance: SODIUM PICOSULFATE
     Dosage: 1 DF=10 DF
  3. TRASTUZUMAB [Suspect]
     Active Substance: TRASTUZUMAB
     Indication: BREAST CANCER
     Dosage: INFUSION,MAINTANCE DOSE 6MG/KG?LAST DOSE: 12JUL2013;8 MG/KG,ON DAY 1,CYCLE;5SEP13450 MG,L IN 28 D
     Route: 042
     Dates: start: 20130402
  4. LYRICA [Concomitant]
     Active Substance: PREGABALIN
     Indication: METASTASIS
     Dates: start: 20130801
  5. IBUPROFEN. [Concomitant]
     Active Substance: IBUPROFEN
  6. DUROGESIC [Concomitant]
     Active Substance: FENTANYL
     Indication: METASTATIC PAIN
     Dosage: 1 DF=125/3MG.
  7. PARAFFIN [Concomitant]
     Active Substance: PARAFFIN
  8. LASIX [Concomitant]
     Active Substance: FUROSEMIDE
     Dates: start: 20130801
  9. SAROTEN [Concomitant]
     Active Substance: AMITRIPTYLINE
  10. LEVOTHYROXIN [Concomitant]
     Active Substance: LEVOTHYROXINE
     Dates: start: 19970501
  11. ULCOGANT [Concomitant]
     Active Substance: SUCRALFATE
     Dosage: 1 DF=3 DF
  12. PACLITAXEL. [Suspect]
     Active Substance: PACLITAXEL
     Indication: BREAST CANCER
     Dosage: LAST DOSE:12JUL2013?RECENT DOSE : 05SEP13; STOPPED;145MG
     Route: 042
     Dates: start: 20130402
  13. PERTUZUMAB [Suspect]
     Active Substance: PERTUZUMAB
     Indication: BREAST CANCER
     Dosage: INFUSION,MAINTENANCE DOSE:420MG:23APR13:ONG?LAST DOSE: 12JUL2013
     Route: 042
     Dates: start: 20130402
  14. PANTOZOL [Concomitant]
     Active Substance: PANTOPRAZOLE SODIUM

REACTIONS (3)
  - Diarrhoea [Recovered/Resolved with Sequelae]
  - Hypokalaemia [Recovered/Resolved]
  - General physical health deterioration [Recovered/Resolved]

NARRATIVE: CASE EVENT DATE: 20130513
